FAERS Safety Report 17225678 (Version 1)
Quarter: 2019Q4

REPORT INFORMATION
  Report Type: Spontaneous
  Country: US (occurrence: US)
  Receive Date: 20191209
  Receipt Date: 20191209
  Transmission Date: 20200122
  Serious: Yes (Hospitalization)
  Sender: FDA-Public Use
  Company Number: None

PATIENT
  Age: 39 Year
  Sex: Male
  Weight: 99 kg

DRUGS (3)
  1. TOPAMAX [Suspect]
     Active Substance: TOPIRAMATE
     Indication: INSOMNIA
     Dosage: ?          OTHER DOSE:3 TAB;OTHER FREQUENCY:HS;?
     Route: 048
     Dates: start: 20161019, end: 20190925
  2. TOPAMAX [Suspect]
     Active Substance: TOPIRAMATE
     Indication: ALCOHOLISM
     Dosage: ?          OTHER DOSE:3 TAB;OTHER FREQUENCY:HS;?
     Route: 048
     Dates: start: 20161019, end: 20190925
  3. TOPAMAX [Suspect]
     Active Substance: TOPIRAMATE
     Indication: MIGRAINE PROPHYLAXIS
     Dosage: ?          OTHER DOSE:3 TAB;OTHER FREQUENCY:HS;?
     Route: 048
     Dates: start: 20161019, end: 20190925

REACTIONS (3)
  - Abdominal pain lower [None]
  - Blood creatinine increased [None]
  - Nephrolithiasis [None]

NARRATIVE: CASE EVENT DATE: 20190903
